FAERS Safety Report 7986057-X (Version None)
Quarter: 2011Q4

REPORT INFORMATION
  Report Type: 
  Country: None (occurrence: None)
  Receive Date: 20111216
  Receipt Date: 20110110
  Transmission Date: 20120403
  Serious: No
  Sender: FDA-Public Use
  Company Number: US-BRISTOL-MYERS SQUIBB COMPANY-15478886

PATIENT
  Sex: Female

DRUGS (4)
  1. LEXAPRO [Suspect]
  2. ABILIFY [Suspect]
     Route: 048
  3. AMBIEN [Suspect]
  4. LAMICTAL [Suspect]

REACTIONS (1)
  - TARDIVE DYSKINESIA [None]
